FAERS Safety Report 7789316-9 (Version None)
Quarter: 2011Q3

REPORT INFORMATION
  Report Type: 
  Country: None (occurrence: None)
  Receive Date: 20110930
  Receipt Date: 20110920
  Transmission Date: 20111222
  Serious: Yes (Hospitalization)
  Sender: FDA-Public Use
  Company Number: US-GLAXOSMITHKLINE-A0945310A

PATIENT
  Age: 63 Year
  Sex: Male

DRUGS (9)
  1. NEURONTIN [Concomitant]
  2. ASPIRIN [Concomitant]
  3. ELAVIL [Concomitant]
  4. HEPARIN [Concomitant]
  5. PLETAL [Concomitant]
  6. COREG [Suspect]
     Indication: CARDIAC FAILURE CONGESTIVE
     Dosage: 25MG TWICE PER DAY
     Route: 048
     Dates: end: 20110917
  7. PLAVIX [Concomitant]
  8. FERROUS SULFATE TAB [Concomitant]
  9. DUONEB [Concomitant]

REACTIONS (2)
  - BLOOD ALKALINE PHOSPHATASE INCREASED [None]
  - PNEUMONIA [None]
